FAERS Safety Report 4901967-5 (Version None)
Quarter: 2006Q1

REPORT INFORMATION
  Report Type: 
  Country: None (occurrence: None)
  Receive Date: 20060206
  Receipt Date: 20060125
  Transmission Date: 20060701
  Serious: Yes (Hospitalization)
  Sender: FDA-Public Use
  Company Number: FR-ROCHE-433645

PATIENT
  Age: 62 Year
  Sex: Male

DRUGS (1)
  1. NAPROXEN [Suspect]
     Indication: DRUG USE FOR UNKNOWN INDICATION
     Dosage: DOSAGE REGIMEN REPORTED AS: 2 TOTAL DOSE.
     Route: 048
     Dates: start: 20051107, end: 20051108

REACTIONS (16)
  - ABDOMINAL PAIN [None]
  - ARTHRALGIA [None]
  - DIARRHOEA [None]
  - HAEMATURIA [None]
  - HYPOALBUMINAEMIA [None]
  - INFLAMMATION [None]
  - LEUKOCYTOCLASTIC VASCULITIS [None]
  - LEUKOCYTURIA [None]
  - NORMOCHROMIC NORMOCYTIC ANAEMIA [None]
  - PROTEINURIA [None]
  - PRURITUS GENERALISED [None]
  - PURPURA [None]
  - RECTAL HAEMORRHAGE [None]
  - RENAL IMPAIRMENT [None]
  - RENAL NECROSIS [None]
  - VOMITING [None]
